FAERS Safety Report 18248750 (Version 1)
Quarter: 2020Q3

REPORT INFORMATION
  Report Type: Spontaneous
  Country: US (occurrence: US)
  Receive Date: 20200909
  Receipt Date: 20200909
  Transmission Date: 20201103
  Serious: Yes (Death)
  Sender: FDA-Public Use
  Company Number: US-BAXTER-2020BAX018543

PATIENT

DRUGS (1)
  1. HEPARIN SODIUM IN 0.9% SODIUM CHLORIDE [Suspect]
     Active Substance: HEPARIN SODIUM\SODIUM CHLORIDE
     Indication: PRODUCT USED FOR UNKNOWN INDICATION
     Dosage: VIA SPECTRUM INFUSION PUMP
     Route: 065

REACTIONS (2)
  - Medication error [Unknown]
  - Death [Fatal]

NARRATIVE: CASE EVENT DATE: 20200827
